FAERS Safety Report 7942747-6 (Version None)
Quarter: 2011Q4

REPORT INFORMATION
  Report Type: 
  Country: None (occurrence: None)
  Receive Date: 20111128
  Receipt Date: 20111024
  Transmission Date: 20120403
  Serious: No
  Sender: FDA-Public Use
  Company Number: US-BAYER-2011-104444

PATIENT
  Age: 31 Year
  Sex: Female

DRUGS (1)
  1. ALEVE (CAPLET) [Suspect]
     Dosage: 2 DF, QD
     Route: 048
     Dates: start: 20111024, end: 20111024

REACTIONS (1)
  - DIARRHOEA [None]
